FAERS Safety Report 4855159-9 (Version None)
Quarter: 2005Q4

REPORT INFORMATION
  Report Type: 
  Country: None (occurrence: None)
  Receive Date: 20051215
  Receipt Date: 20051208
  Transmission Date: 20060501
  Serious: Yes (Hospitalization)
  Sender: FDA-Public Use
  Company Number: US-MERCK-0512USA01782

PATIENT
  Age: 50 Year
  Sex: Male
  Weight: 104 kg

DRUGS (1)
  1. VIOXX [Suspect]
     Indication: SCIATIC NERVE INJURY
     Route: 048
     Dates: start: 20020615

REACTIONS (3)
  - ACUTE MYOCARDIAL INFARCTION [None]
  - CORONARY ARTERY DISEASE [None]
  - CORONARY ARTERY STENOSIS [None]
